FAERS Safety Report 10579940 (Version 3)
Quarter: 2014Q4

REPORT INFORMATION
  Report Type: Spontaneous
  Country: JP (occurrence: JP)
  Receive Date: 20141112
  Receipt Date: 20141221
  Transmission Date: 20150529
  Serious: Yes (Hospitalization, Other)
  Sender: FDA-Public Use
  Company Number: JP-GLAXOSMITHKLINE-A201402545

PATIENT
  Age: 63 Year
  Sex: Female

DRUGS (15)
  1. PAZOPANIB [Suspect]
     Active Substance: PAZOPANIB
     Indication: METASTASES TO PLEURA
  2. ASTOMIN [Concomitant]
     Active Substance: DIMEMORFAN
     Indication: PRODUCTIVE COUGH
  3. BISOLVON [Concomitant]
     Active Substance: BROMHEXINE HYDROCHLORIDE
     Indication: COUGH
     Dosage: 4 MG, TID
     Dates: start: 20130812
  4. GASTER [Concomitant]
     Active Substance: FAMOTIDINE
     Indication: ABDOMINAL PAIN UPPER
     Dosage: 10 MG, BID
     Dates: start: 20131023
  5. TRAVELMIN [Concomitant]
     Active Substance: DIMENHYDRINATE
     Indication: NAUSEA
     Dosage: 1 DF, TID
     Dates: start: 20131010
  6. MALFA [Concomitant]
     Indication: NAUSEA
     Dosage: 10 ML, TID
     Dates: start: 20131029
  7. PAZOPANIB [Suspect]
     Active Substance: PAZOPANIB
     Indication: SOFT TISSUE SARCOMA
     Dosage: 800 MG, QD
     Route: 048
     Dates: start: 20131023, end: 20131202
  8. PAZOPANIB [Suspect]
     Active Substance: PAZOPANIB
     Indication: SOFT TISSUE SARCOMA
     Dosage: 200 MG, QD
     Route: 048
     Dates: start: 2014
  9. ASTOMIN [Concomitant]
     Active Substance: DIMEMORFAN
     Indication: COUGH
     Dosage: 20 MG, TID
     Dates: start: 20130812
  10. MALFA [Concomitant]
     Indication: ABDOMINAL PAIN UPPER
  11. MUCOSTA [Concomitant]
     Active Substance: REBAMIPIDE
     Indication: NAUSEA
     Dosage: 100 MG, TID
     Dates: start: 20131010
  12. PRIMPERAN [Concomitant]
     Active Substance: METOCLOPRAMIDE HYDROCHLORIDE
     Indication: ABDOMINAL PAIN UPPER
  13. PRIMPERAN [Concomitant]
     Active Substance: METOCLOPRAMIDE HYDROCHLORIDE
     Indication: NAUSEA
     Dosage: 5 MG, TID
     Dates: start: 20131029
  14. OXYCONTIN [Concomitant]
     Active Substance: OXYCODONE HYDROCHLORIDE
     Indication: DYSPNOEA
     Dosage: 5 MG, BID
     Dates: start: 20131010
  15. BISOLVON [Concomitant]
     Active Substance: BROMHEXINE HYDROCHLORIDE
     Indication: PRODUCTIVE COUGH

REACTIONS (5)
  - Thyroiditis [Recovering/Resolving]
  - Thyroid disorder [Recovering/Resolving]
  - Hypothyroidism [Unknown]
  - Hyperthyroidism [Recovering/Resolving]
  - Hepatic function abnormal [Recovering/Resolving]

NARRATIVE: CASE EVENT DATE: 20131125
